FAERS Safety Report 8623327-6 (Version None)
Quarter: 2012Q3

REPORT INFORMATION
  Report Type: 
  Country: None (occurrence: None)
  Receive Date: 20120827
  Receipt Date: 20120822
  Transmission Date: 20120928
  Serious: Yes (Other)
  Sender: FDA-Public Use
  Company Number: PHHY2012DE073273

PATIENT
  Sex: Male

DRUGS (9)
  1. ACTOS [Concomitant]
     Indication: DIABETES MELLITUS
     Dosage: UNK
  2. DIOVAN [Suspect]
     Indication: HYPERTENSION
  3. TORSEMIDE [Concomitant]
     Dosage: UNK
  4. TAMSULOSIN HCL [Concomitant]
     Dosage: UNK
  5. DIGITOXIN TAB [Concomitant]
     Dosage: UNK
  6. RASILEZ [Suspect]
     Indication: HYPERTENSION
     Dates: start: 20070101, end: 20120822
  7. AMLODIPINE [Concomitant]
     Dosage: UNK
  8. EZETIMIBE [Concomitant]
     Dosage: UNK
  9. CAPTOPRIL [Concomitant]

REACTIONS (5)
  - THROMBOSIS [None]
  - SHUNT OCCLUSION [None]
  - RENAL IMPAIRMENT [None]
  - HYPERKALAEMIA [None]
  - CEREBROVASCULAR ACCIDENT [None]
